FAERS Safety Report 4758088-4 (Version None)
Quarter: 2005Q3

REPORT INFORMATION
  Report Type: 
  Country: None (occurrence: None)
  Receive Date: 20050831
  Receipt Date: 20050714
  Transmission Date: 20060218
  Serious: Yes (Death, Hospitalization, Disabling)
  Sender: FDA-Public Use
  Company Number: IE-MERCK-0507GBR00150

PATIENT
  Age: 84 Year
  Sex: Male

DRUGS (11)
  1. DECADRON [Suspect]
     Indication: GENERAL NUTRITION DISORDER
     Route: 048
  2. DECADRON [Suspect]
     Route: 048
  3. DECADRON [Suspect]
     Indication: APPETITE DISORDER
     Route: 048
  4. DECADRON [Suspect]
     Route: 048
  5. MORPHINE [Concomitant]
     Indication: PAIN
     Route: 065
  6. LACTULOSE [Concomitant]
     Indication: CONSTIPATION
     Route: 065
  7. MAGNESIUM HYDROXIDE AND MINERAL OIL [Concomitant]
     Indication: CONSTIPATION
     Route: 065
  8. SODIUM PICOSULFATE [Concomitant]
     Indication: CONSTIPATION
     Route: 065
  9. OMEPRAZOLE [Concomitant]
     Indication: GASTRIC DISORDER
     Route: 065
  10. DOMPERIDONE [Concomitant]
     Route: 065
  11. AMIODARONE HYDROCHLORIDE [Concomitant]
     Route: 065

REACTIONS (2)
  - PROSTATE CANCER [None]
  - TENDON RUPTURE [None]
